FAERS Safety Report 5807695-6 (Version None)
Quarter: 2008Q3

REPORT INFORMATION
  Report Type: 
  Country: None (occurrence: None)
  Receive Date: 20080711
  Receipt Date: 20080704
  Transmission Date: 20090109
  Serious: Yes (Hospitalization)
  Sender: FDA-Public Use
  Company Number: NO-AVENTIS-200816407GDDC

PATIENT
  Age: 57 Year
  Sex: Female

DRUGS (5)
  1. FLAGYL [Suspect]
     Dates: start: 20080513, end: 20080526
  2. CIPROXIN                           /00697201/ [Suspect]
     Dates: start: 20080513, end: 20080526
  3. SERETIDE [Concomitant]
     Dosage: DOSE: UNK
  4. ZYRTEC [Concomitant]
  5. VENTOLIN [Concomitant]
     Dosage: DOSE: UNK

REACTIONS (1)
  - PSYCHOTIC DISORDER [None]
